FAERS Safety Report 8439888-6 (Version None)
Quarter: 2012Q2

REPORT INFORMATION
  Report Type: 
  Country: None (occurrence: None)
  Receive Date: 20120615
  Receipt Date: 20120611
  Transmission Date: 20120825
  Serious: Yes (Hospitalization, Other)
  Sender: FDA-Public Use
  Company Number: PHHY2012FR031305

PATIENT
  Sex: Male
  Weight: 81 kg

DRUGS (3)
  1. RASILEZ HCT [Suspect]
     Indication: RENAL FAILURE CHRONIC
     Dosage: 1 DF, QD
     Route: 048
     Dates: start: 20100501, end: 20120202
  2. VALSARTAN [Suspect]
     Indication: RENAL FAILURE CHRONIC
     Route: 048
     Dates: start: 20060101, end: 20111201
  3. OMIX [Concomitant]

REACTIONS (7)
  - CEREBELLAR SYNDROME [None]
  - NECROSIS ISCHAEMIC [None]
  - DRUG INTERACTION [None]
  - CEREBROVASCULAR ACCIDENT [None]
  - CEREBELLAR INFARCTION [None]
  - HEADACHE [None]
  - BLOOD PRESSURE INCREASED [None]
